FAERS Safety Report 12683152 (Version 1)
Quarter: 2016Q3

REPORT INFORMATION
  Report Type: Spontaneous
  Country: US (occurrence: None)
  Receive Date: 20160824
  Receipt Date: 20160824
  Transmission Date: 20161109
  Serious: No
  Sender: FDA-Public Use
  Company Number: None

PATIENT

DRUGS (2)
  1. SODIUM BICARBONATE INFANT SODIUM BICARBONATE HOSPIRA, INC. [Suspect]
     Active Substance: SODIUM BICARBONATE
     Dosage: INJECTABLE, SYRINGE 10 ML
     Route: 042
  2. EPINEPHRINE HOSPIRA, INC. [Suspect]
     Active Substance: EPINEPHRINE
     Dosage: INJECTABLE SYRINGE 10 ML
     Route: 042

REACTIONS (2)
  - Wrong drug administered [None]
  - Product packaging confusion [None]
